FAERS Safety Report 16917485 (Version 1)
Quarter: 2019Q4

REPORT INFORMATION
  Report Type: Spontaneous
  Country: CA (occurrence: CA)
  Receive Date: 20191015
  Receipt Date: 20191015
  Transmission Date: 20200122
  Serious: Yes (Hospitalization, Other)
  Sender: FDA-Public Use
  Company Number: CA-TEVA-2019-CA-1121112

PATIENT
  Age: 57 Year
  Sex: Female

DRUGS (8)
  1. DOCETAXEL. [Suspect]
     Active Substance: DOCETAXEL
     Indication: HER-2 POSITIVE BREAST CANCER
     Dosage: SOLUTION INTRAVENOUS, 137 MG, 1 EVERY 3 WEEKS
     Route: 042
  2. AMLODIPINE BESILATE [Concomitant]
     Active Substance: AMLODIPINE BESYLATE
  3. LIPITOR [Concomitant]
     Active Substance: ATORVASTATIN CALCIUM
  4. TRASTUZUMAB. [Suspect]
     Active Substance: TRASTUZUMAB
     Indication: HER-2 POSITIVE BREAST CANCER
     Dosage: 28.8095 MILLIGRAM DAILY;
     Route: 042
  5. CARBOPLATIN. [Suspect]
     Active Substance: CARBOPLATIN
     Indication: HER-2 POSITIVE BREAST CANCER
     Dosage: 762 MG, 1 EVERY 3 WEEKS, SOLUTION INTRAVENOUS
     Route: 042
  6. ZOPICLONE [Concomitant]
     Active Substance: ZOPICLONE
  7. HYDROCHLOROTHIAZIDE. [Concomitant]
     Active Substance: HYDROCHLOROTHIAZIDE
  8. AVA-SIMVASTATIN [Suspect]
     Active Substance: SIMVASTATIN
     Indication: HER-2 POSITIVE BREAST CANCER
     Route: 042

REACTIONS (6)
  - Neutropenia [Unknown]
  - Myalgia [Unknown]
  - Dyspnoea [Unknown]
  - Fatigue [Unknown]
  - Decreased appetite [Unknown]
  - Nausea [Unknown]
